FAERS Safety Report 4386099-X (Version None)
Quarter: 2004Q2

REPORT INFORMATION
  Report Type: 
  Country: None (occurrence: None)
  Receive Date: 20040625
  Receipt Date: 20040625
  Transmission Date: 20050107
  Serious: Yes (Hospitalization)
  Sender: FDA-Public Use
  Company Number: None

PATIENT
  Sex: Female
  Weight: 56.4 kg

DRUGS (3)
  1. CARBOPLATIN [Suspect]
     Indication: NEOPLASM RECURRENCE
     Dosage: IVPB Q 4 WKS
     Route: 042
     Dates: start: 20040527
  2. CARBOPLATIN [Suspect]
     Indication: OVARIAN CANCER
     Dosage: IVPB Q 4 WKS
     Route: 042
     Dates: start: 20040527
  3. DOXIL [Suspect]
     Dosage: IVPB Q 4 WKS
     Route: 042
     Dates: start: 20040527

REACTIONS (2)
  - RECTAL HAEMORRHAGE [None]
  - THROMBOCYTOPENIA [None]
